FAERS Safety Report 10166447 (Version 1)
Quarter: 2014Q2

REPORT INFORMATION
  Report Type: Spontaneous
  Country: US (occurrence: None)
  Receive Date: 20140509
  Receipt Date: 20140509
  Transmission Date: 20141212
  Serious: No
  Sender: FDA-Public Use
  Company Number: None

PATIENT
  Sex: Female
  Weight: 124.29 kg

DRUGS (2)
  1. DULOXETINE [Suspect]
     Indication: DEPRESSION
     Dosage: DULOXETINE 60MG BID PO
     Route: 048
     Dates: start: 20130513, end: 20130423
  2. DULOXETINE [Suspect]
     Indication: FIBROMYALGIA
     Dosage: DULOXETINE 60MG BID PO
     Route: 048
     Dates: start: 20130513, end: 20130423

REACTIONS (2)
  - Product substitution issue [None]
  - Drug ineffective [None]
